FAERS Safety Report 25914008 (Version 1)
Quarter: 2025Q4

REPORT INFORMATION
  Report Type: Spontaneous
  Country: CN (occurrence: CN)
  Receive Date: 20251013
  Receipt Date: 20251013
  Transmission Date: 20260118
  Serious: Yes (Death, Other)
  Sender: AMGEN
  Company Number: CN-AMGEN-CHNSP2025200652

PATIENT
  Age: 76 Year
  Sex: Female

DRUGS (8)
  1. XGEVA [Suspect]
     Active Substance: DENOSUMAB
     Indication: Perivascular epithelioid cell tumour
     Dosage: 120 MILLIGRAM, REPEATED EVERY 28 DAYS
     Route: 058
     Dates: start: 20220817
  2. EVEROLIMUS [Concomitant]
     Active Substance: EVEROLIMUS
     Dosage: 10 MILLIGRAM, QD, ABOUT 1 WEEK
     Dates: start: 20210101
  3. EVEROLIMUS [Concomitant]
     Active Substance: EVEROLIMUS
     Dosage: 5 MILLIGRAM, QD
  4. EVEROLIMUS [Concomitant]
     Active Substance: EVEROLIMUS
     Dosage: UNK
  5. CATEQUENTINIB [Concomitant]
     Active Substance: CATEQUENTINIB
     Dosage: 8 MILLIGRAM, QD, CONSECUTIVE 14 DAYS
  6. CATEQUENTINIB [Concomitant]
     Active Substance: CATEQUENTINIB
     Dosage: 8 MILLIGRAM, Q3WK
  7. CATEQUENTINIB [Concomitant]
     Active Substance: CATEQUENTINIB
     Dosage: UNK
     Dates: start: 20220817
  8. TORIPALIMAB [Concomitant]
     Active Substance: TORIPALIMAB
     Dosage: UNK
     Dates: start: 20220817

REACTIONS (6)
  - Respiratory failure [Fatal]
  - Metastases to lung [Unknown]
  - Pneumothorax [Unknown]
  - Metastases to pleura [Unknown]
  - Pneumonia [Unknown]
  - Lymphadenitis [Unknown]

NARRATIVE: CASE EVENT DATE: 20230801
